FAERS Safety Report 4424416-2 (Version None)
Quarter: 2004Q3

REPORT INFORMATION
  Report Type: 
  Country: None (occurrence: None)
  Receive Date: 20040715
  Receipt Date: 20040329
  Transmission Date: 20050211
  Serious: Yes (Other)
  Sender: FDA-Public Use
  Company Number: 2004206276US

PATIENT
  Age: 38 Year
  Sex: Female

DRUGS (2)
  1. CELEBREX [Suspect]
     Indication: FOOT OPERATION
     Dosage: QD, ORAL
     Route: 048
     Dates: start: 20010601, end: 20010601
  2. VICODIN [Concomitant]

REACTIONS (3)
  - NAUSEA [None]
  - RASH ERYTHEMATOUS [None]
  - ULCER HAEMORRHAGE [None]
